FAERS Safety Report 14859512 (Version 1)
Quarter: 2018Q2

REPORT INFORMATION
  Report Type: Spontaneous
  Country: FR (occurrence: FR)
  Receive Date: 20180508
  Receipt Date: 20180508
  Transmission Date: 20180711
  Serious: Yes (Other)
  Sender: FDA-Public Use
  Company Number: FR-MERCK KGAA-2047389

PATIENT
  Age: 52 Year
  Sex: Female

DRUGS (1)
  1. NOVOTHYROX [Suspect]
     Active Substance: LEVOTHYROXINE SODIUM
     Indication: PRODUCT USED FOR UNKNOWN INDICATION
     Dates: start: 201705

REACTIONS (29)
  - Defaecation urgency [None]
  - Disturbance in attention [None]
  - Aphasia [None]
  - Job dissatisfaction [None]
  - Abdominal discomfort [None]
  - Impatience [None]
  - Impaired driving ability [None]
  - Flat affect [Not Recovered/Not Resolved]
  - Social avoidant behaviour [None]
  - Impaired work ability [None]
  - Dizziness [None]
  - Irritability [Not Recovered/Not Resolved]
  - Loss of personal independence in daily activities [None]
  - Marital problem [None]
  - Asthenia [None]
  - Dysstasia [None]
  - Gait disturbance [None]
  - Lung infection [None]
  - Weight increased [None]
  - Fatigue [Not Recovered/Not Resolved]
  - Tinnitus [None]
  - Impulse-control disorder [Not Recovered/Not Resolved]
  - Pain in extremity [Not Recovered/Not Resolved]
  - Arthralgia [None]
  - Abnormal behaviour [Not Recovered/Not Resolved]
  - C-reactive protein increased [None]
  - Disturbance in attention [Not Recovered/Not Resolved]
  - Middle insomnia [Not Recovered/Not Resolved]
  - Insomnia [None]

NARRATIVE: CASE EVENT DATE: 201705
